FAERS Safety Report 4785535-4 (Version None)
Quarter: 2005Q4

REPORT INFORMATION
  Report Type: 
  Country: None (occurrence: None)
  Receive Date: 20051003
  Receipt Date: 20050921
  Transmission Date: 20060501
  Serious: Yes (Death)
  Sender: FDA-Public Use
  Company Number: 200518622GDDC

PATIENT
  Age: 68 Year
  Sex: Male

DRUGS (2)
  1. RIFAMPIN [Suspect]
     Indication: TUBERCULOSIS
     Dosage: DOSE: UNK
  2. ISONIAZID [Suspect]
     Indication: TUBERCULOSIS

REACTIONS (1)
  - HEPATOCELLULAR DAMAGE [None]
